FAERS Safety Report 9506651 (Version 1)
Quarter: 2013Q3

REPORT INFORMATION
  Report Type: Spontaneous
  Country: US (occurrence: US)
  Receive Date: 20130907
  Receipt Date: 20130907
  Transmission Date: 20140515
  Serious: Yes (Other)
  Sender: FDA-Public Use
  Company Number: US-BRISTOL-MYERS SQUIBB COMPANY-19357250

PATIENT
  Age: 32 Year
  Sex: Male

DRUGS (2)
  1. SUSTIVA [Suspect]
     Indication: HIV INFECTION
     Dosage: 1DF: 600 UNITS NOS
     Dates: start: 20121130
  2. REYATAZ [Suspect]
     Indication: HIV INFECTION
     Dosage: 1DF: 300 UNITS NOS
     Dates: start: 20121130

REACTIONS (1)
  - Non-Hodgkin^s lymphoma [Unknown]
